FAERS Safety Report 5731782-4 (Version None)
Quarter: 2008Q2

REPORT INFORMATION
  Report Type: 
  Country: None (occurrence: None)
  Receive Date: 20080508
  Receipt Date: 20080428
  Transmission Date: 20081010
  Serious: Yes (Hospitalization)
  Sender: FDA-Public Use
  Company Number: GB-ROCHE-560846

PATIENT
  Age: 47 Year
  Sex: Female

DRUGS (2)
  1. PEGASYS [Suspect]
     Indication: HEPATITIS C
     Route: 065
     Dates: start: 20080303
  2. PEGASYS [Suspect]
     Route: 065
     Dates: start: 20080424

REACTIONS (18)
  - ARTHRALGIA [None]
  - BACK PAIN [None]
  - DEHYDRATION [None]
  - DEPRESSION [None]
  - DIARRHOEA [None]
  - EYE PRURITUS [None]
  - FATIGUE [None]
  - FEELING ABNORMAL [None]
  - FLUID INTAKE REDUCED [None]
  - ILL-DEFINED DISORDER [None]
  - MALAISE [None]
  - ORAL INTAKE REDUCED [None]
  - PANIC ATTACK [None]
  - POOR QUALITY SLEEP [None]
  - TOOTH ABSCESS [None]
  - TOOTH INFECTION [None]
  - TOOTH LOSS [None]
  - WHITE BLOOD CELL COUNT DECREASED [None]
